FAERS Safety Report 10385378 (Version 1)
Quarter: 2014Q1

REPORT INFORMATION
  Report Type: Spontaneous
  Country: US (occurrence: None)
  Receive Date: 20140306
  Receipt Date: 20140306
  Transmission Date: 20141002
  Serious: Yes (Hospitalization, Other)
  Sender: FDA-Public Use
  Company Number: 163-21880-13042588

PATIENT
  Age: 72 Year
  Sex: Male
  Weight: 97.52 kg

DRUGS (7)
  1. REVLIMID (LENALIDOMIDE) (5 MILLIGRAM, CAPSULES) [Suspect]
     Indication: PLASMA CELL MYELOMA
     Route: 048
     Dates: start: 20071207
  2. ACYCLOVIR (ACICLOVIR) [Concomitant]
  3. DILTIAZEM (DILTIAZEM HYDROCHLORIDE) [Concomitant]
  4. DOCUSATE SODIUM (DOCUSATE SODIUM) [Concomitant]
  5. FLOMAX (TAMSULOSIN HYDROCHLORIDE) [Concomitant]
  6. GABAPENTIN (GABAPENTIN) [Concomitant]
  7. METOPROLOL SUCCINATE (METOPROLOL SUCCINATE) [Concomitant]

REACTIONS (1)
  - Respiratory tract infection [None]
